FAERS Safety Report 7526501-5 (Version None)
Quarter: 2011Q2

REPORT INFORMATION
  Report Type: 
  Country: None (occurrence: None)
  Receive Date: 20110606
  Receipt Date: 20110523
  Transmission Date: 20111010
  Serious: Yes (Hospitalization)
  Sender: FDA-Public Use
  Company Number: JP-JNJFOC-20110505685

PATIENT
  Sex: Female

DRUGS (15)
  1. REMICADE [Suspect]
     Dosage: 8TH INFUSION
     Route: 042
     Dates: start: 20110125
  2. REMICADE [Suspect]
     Indication: RHEUMATOID ARTHRITIS
     Dosage: 7TH DOSE OF INFLIXIMAB
     Route: 042
  3. NORVASC [Concomitant]
     Route: 048
  4. MUCOSTA [Concomitant]
     Route: 048
  5. ACTONEL [Concomitant]
     Route: 048
  6. PYDOXAL [Concomitant]
     Route: 048
  7. METHOTREXATE [Suspect]
     Indication: RHEUMATOID ARTHRITIS
     Dosage: DOSE 8 MG/WEEK ON MONDAY MORNINGS AND EVENINGS
     Route: 048
     Dates: start: 20100902
  8. AZULFIDINE [Concomitant]
     Route: 048
  9. REMICADE [Suspect]
     Route: 042
     Dates: start: 20100309
  10. PREDNISOLONE [Suspect]
     Indication: RHEUMATOID ARTHRITIS
     Route: 048
     Dates: start: 20100902
  11. LORCAM [Concomitant]
     Route: 048
  12. FOLIC ACID [Concomitant]
     Route: 048
  13. DIOVAN [Concomitant]
     Route: 048
  14. RIMATIL [Concomitant]
     Route: 048
  15. LOXONIN [Concomitant]
     Route: 048

REACTIONS (3)
  - TUBERCULOSIS GASTROINTESTINAL [None]
  - PERITONEAL TUBERCULOSIS [None]
  - UPPER RESPIRATORY TRACT INFLAMMATION [None]
